FAERS Safety Report 6175275-1 (Version None)
Quarter: 2009Q2

REPORT INFORMATION
  Report Type: 
  Country: None (occurrence: None)
  Receive Date: 20090430
  Receipt Date: 20090205
  Transmission Date: 20091009
  Serious: No
  Sender: FDA-Public Use
  Company Number: US-ASTRAZENECA-2009UW03405

PATIENT
  Age: 85 Year
  Sex: Female
  Weight: 81.6 kg

DRUGS (3)
  1. NEXIUM [Suspect]
     Route: 048
  2. DIOVAN [Concomitant]
     Indication: BLOOD PRESSURE AMBULATORY ABNORMAL
  3. NORVASC [Concomitant]

REACTIONS (4)
  - ABDOMINAL PAIN UPPER [None]
  - FALL [None]
  - HEADACHE [None]
  - SOMNOLENCE [None]
